FAERS Safety Report 5391700-8 (Version None)
Quarter: 2007Q3

REPORT INFORMATION
  Report Type: 
  Country: None (occurrence: None)
  Receive Date: 20070717
  Receipt Date: 20070702
  Transmission Date: 20080115
  Serious: Yes (Other)
  Sender: FDA-Public Use
  Company Number: 2007S1000174

PATIENT
  Age: 53 Year
  Sex: Female

DRUGS (1)
  1. ACITRETIN [Suspect]
     Indication: PSORIASIS
     Dosage: 25 MG;QD;PO
     Route: 048
     Dates: start: 20060209, end: 20070315

REACTIONS (1)
  - TENDONITIS [None]
